FAERS Safety Report 5674597-8 (Version None)
Quarter: 2008Q2

REPORT INFORMATION
  Report Type: 
  Country: None (occurrence: None)
  Receive Date: 20080303
  Receipt Date: 20070208
  Transmission Date: 20081010
  Serious: Yes (Other)
  Sender: FDA-Public Use
  Company Number: MK-6030178

PATIENT
  Age: 12 Year

DRUGS (1)
  1. AMNESTEEM [Suspect]
     Indication: NEUROBLASTOMA
     Dosage: 40 MG;NULL_1_1DAY;ORAL
     Route: 048
     Dates: start: 20060301, end: 20060601

REACTIONS (1)
  - DRUG INEFFECTIVE FOR UNAPPROVED INDICATION [None]
